FAERS Safety Report 4434368-7 (Version None)
Quarter: 2004Q3

REPORT INFORMATION
  Report Type: 
  Country: None (occurrence: None)
  Receive Date: 20040825
  Receipt Date: 20040810
  Transmission Date: 20050211
  Serious: Yes (Other)
  Sender: FDA-Public Use
  Company Number: USA040875115

PATIENT
  Age: 62 Year
  Sex: Male
  Weight: 93 kg

DRUGS (3)
  1. HUMULIN R [Suspect]
     Dosage: 20 U DAY
     Dates: start: 19940101
  2. HUMULIN N [Suspect]
     Dosage: 26 U DAY
     Dates: start: 19940101
  3. AVANDIA [Concomitant]

REACTIONS (6)
  - ARTERIAL DISORDER [None]
  - BLOOD GLUCOSE INCREASED [None]
  - CARDIAC DISORDER [None]
  - DRUG INEFFECTIVE [None]
  - MYOCARDIAL INFARCTION [None]
  - PHARMACEUTICAL PRODUCT COMPLAINT [None]
